FAERS Safety Report 11848877 (Version 1)
Quarter: 2015Q4

REPORT INFORMATION
  Report Type: Other
  Country: US (occurrence: US)
  Receive Date: 20151218
  Receipt Date: 20151218
  Transmission Date: 20160305
  Serious: Yes (Other)
  Sender: FDA-Public Use
  Company Number: US-LUPIN PHARMACEUTICALS INC.-2015-04097

PATIENT
  Age: 28 Year
  Sex: Female

DRUGS (2)
  1. LEVOFLOXACIN. [Suspect]
     Active Substance: LEVOFLOXACIN
     Indication: PROPHYLAXIS
     Dosage: 750 MG/DAY
     Route: 065
  2. LEVOFLOXACIN. [Suspect]
     Active Substance: LEVOFLOXACIN
     Dosage: 750 MG/DAY
     Route: 065

REACTIONS (18)
  - Sleep disorder [Unknown]
  - Tendon pain [Unknown]
  - Arthralgia [Unknown]
  - Activities of daily living impaired [Unknown]
  - Gastrointestinal disorder [Unknown]
  - Affective disorder [Unknown]
  - Muscle atrophy [Unknown]
  - Cognitive disorder [Unknown]
  - Muscle spasms [Unknown]
  - Blood glucose abnormal [Unknown]
  - Nervous system disorder [Unknown]
  - Muscular weakness [Unknown]
  - Peripheral coldness [Unknown]
  - Fatigue [Unknown]
  - Muscle contractions involuntary [Unknown]
  - Dyspnoea [Unknown]
  - Bedridden [Unknown]
  - Myalgia [Unknown]
